FAERS Safety Report 9496559 (Version 1)
Quarter: 2013Q3

REPORT INFORMATION
  Report Type: Spontaneous
  Country: US (occurrence: None)
  Receive Date: 20130829
  Receipt Date: 20130829
  Transmission Date: 20140515
  Serious: Yes (Hospitalization)
  Sender: FDA-Public Use
  Company Number: NSR_01221_2013

PATIENT
  Age: 73 Year
  Sex: Male

DRUGS (5)
  1. ALLOPURINOL [Suspect]
     Indication: HYPERURICAEMIA
  2. ASPIRIN [Concomitant]
  3. ATENOLOL [Concomitant]
  4. SIMVASTATIN [Concomitant]
  5. BEZAFIBRATE [Concomitant]

REACTIONS (6)
  - Drug reaction with eosinophilia and systemic symptoms [None]
  - Lung infiltration [None]
  - Pneumonia [None]
  - Confusional state [None]
  - Liver injury [None]
  - Renal injury [None]
